FAERS Safety Report 24410176 (Version 1)
Quarter: 2024Q4

REPORT INFORMATION
  Report Type: Spontaneous
  Country: DE (occurrence: DE)
  Receive Date: 20241008
  Receipt Date: 20241008
  Transmission Date: 20250115
  Serious: Yes (Disabling)
  Sender: CHEPLAPHARM
  Company Number: DE-CHEPLA-2024012676

PATIENT
  Age: 78 Year
  Sex: Female

DRUGS (2)
  1. CLONAZEPAM [Suspect]
     Active Substance: CLONAZEPAM
     Indication: Epilepsy
     Dosage: RIVOTRIL 1X 0,5 MG  (IF NECESSARY 2X0,5MG)
     Dates: start: 20240918
  2. BRIVARACETAM [Suspect]
     Active Substance: BRIVARACETAM
     Dosage: 2X 150MG
     Dates: start: 20240918

REACTIONS (2)
  - Speech disorder [Not Recovered/Not Resolved]
  - Restlessness [Not Recovered/Not Resolved]

NARRATIVE: CASE EVENT DATE: 20240918
